FAERS Safety Report 6389693-X (Version None)
Quarter: 2009Q4

REPORT INFORMATION
  Report Type: 
  Country: None (occurrence: None)
  Receive Date: 20091002
  Receipt Date: 20091002
  Transmission Date: 20100525
  Serious: Yes (Other)
  Sender: FDA-Public Use
  Company Number: None

PATIENT
  Age: 62 Year
  Sex: Male
  Weight: 81.6475 kg

DRUGS (2)
  1. FLOMAX [Suspect]
     Indication: DYSURIA
     Dosage: 0.4MG ONCE A DAY PO
     Route: 048
     Dates: start: 20060101, end: 20091001
  2. FLOMAX [Suspect]
     Indication: URINARY RETENTION
     Dosage: 0.4MG ONCE A DAY PO
     Route: 048
     Dates: start: 20060101, end: 20091001

REACTIONS (7)
  - COUGH [None]
  - DIZZINESS [None]
  - DRUG DOSE OMISSION [None]
  - LABYRINTHITIS [None]
  - PRESYNCOPE [None]
  - RESIDUAL URINE [None]
  - SINUSITIS [None]
